FAERS Safety Report 7721033-3 (Version None)
Quarter: 2011Q3

REPORT INFORMATION
  Report Type: 
  Country: None (occurrence: None)
  Receive Date: 20110825
  Receipt Date: 20110810
  Transmission Date: 20111222
  Serious: Yes (Other)
  Sender: FDA-Public Use
  Company Number: FK201101658

PATIENT
  Age: 21 Year
  Sex: Male

DRUGS (4)
  1. ETOPOSIDE [Suspect]
     Indication: GERM CELL CANCER
     Dosage: 400 MG/M2
  2. CISPLATIN [Concomitant]
  3. IFOSFAMIDE [Suspect]
     Indication: GERM CELL CANCER
     Dosage: 2.0 G/M2
  4. CARBOPLATIN [Suspect]
     Indication: GERM CELL CANCER
     Dosage: 300 MG/M2

REACTIONS (6)
  - DECREASED APPETITE [None]
  - PYREXIA [None]
  - THROMBOCYTOPENIA [None]
  - NAUSEA [None]
  - RENAL IMPAIRMENT [None]
  - LEUKOPENIA [None]
